FAERS Safety Report 5086158-2 (Version None)
Quarter: 2006Q3

REPORT INFORMATION
  Report Type: 
  Country: None (occurrence: None)
  Receive Date: 20060818
  Receipt Date: 20060807
  Transmission Date: 20061208
  Serious: Yes (Disabling)
  Sender: FDA-Public Use
  Company Number: 2006096761

PATIENT
  Age: 67 Year
  Sex: Female

DRUGS (3)
  1. AMLODIPINE [Suspect]
     Indication: HYPERTENSION
     Dosage: 5 MG (5 MG DAILY) ORAL
     Route: 048
  2. BENDROFLUMETHIAZIDE [Concomitant]
  3. PERINDOPRIL ERBUMINE [Concomitant]

REACTIONS (1)
  - EAR PAIN [None]
